FAERS Safety Report 7482738-5 (Version None)
Quarter: 2011Q2

REPORT INFORMATION
  Report Type: 
  Country: None (occurrence: None)
  Receive Date: 20110516
  Receipt Date: 20110504
  Transmission Date: 20111010
  Serious: Yes (Hospitalization, Other)
  Sender: FDA-Public Use
  Company Number: US-UCBSA-031922

PATIENT
  Sex: Female

DRUGS (1)
  1. CIMZIA [Suspect]
     Indication: CROHN'S DISEASE
     Route: 058
     Dates: start: 20090102

REACTIONS (6)
  - INTESTINAL OBSTRUCTION [None]
  - CLOSTRIDIAL INFECTION [None]
  - MALAISE [None]
  - DYSGEUSIA [None]
  - INSOMNIA [None]
  - ORAL CANDIDIASIS [None]
